FAERS Safety Report 20934064 (Version 1)
Quarter: 2022Q2

REPORT INFORMATION
  Report Type: Spontaneous
  Country: DE (occurrence: DE)
  Receive Date: 20220608
  Receipt Date: 20220608
  Transmission Date: 20220721
  Serious: Yes (Other)
  Sender: FDA-Public Use
  Company Number: DE-ORGANON-O2109DEU000002

PATIENT
  Age: 47 Year
  Sex: Male
  Weight: 78 kg

DRUGS (4)
  1. MINOXIDIL [Suspect]
     Active Substance: MINOXIDIL
     Indication: Androgenetic alopecia
     Dosage: UNK
     Route: 065
     Dates: start: 20161202
  2. FINASTERIDE [Suspect]
     Active Substance: FINASTERIDE
     Indication: Androgenetic alopecia
     Dosage: UNK
     Route: 048
     Dates: start: 20100608
  3. PROPECIA [Suspect]
     Active Substance: FINASTERIDE
     Indication: Androgenetic alopecia
     Dosage: 1 MILLIGRAM, QD
     Route: 048
     Dates: start: 20021217, end: 20180702
  4. PROPECIA [Suspect]
     Active Substance: FINASTERIDE
     Indication: Alopecia

REACTIONS (21)
  - Acral lentiginous melanoma stage I [Unknown]
  - Erectile dysfunction [Unknown]
  - Anxiety disorder [Unknown]
  - Seborrhoeic dermatitis [Unknown]
  - Sleep disorder [Unknown]
  - Restlessness [Unknown]
  - Milia [Unknown]
  - Skin papilloma [Unknown]
  - Depression [Not Recovered/Not Resolved]
  - Seborrhoeic keratosis [Unknown]
  - Post 5-alpha-reductase inhibitor syndrome [Unknown]
  - Fatigue [Unknown]
  - Loss of libido [Unknown]
  - Melanocytic naevus [Unknown]
  - Listless [Unknown]
  - Panic attack [Recovering/Resolving]
  - Pigmentation disorder [Unknown]
  - Fibroma [Unknown]
  - Actinic elastosis [Unknown]
  - Apathy [Unknown]
  - Depressed mood [Unknown]

NARRATIVE: CASE EVENT DATE: 20020101
